FAERS Safety Report 9559241 (Version 1)
Quarter: 2013Q3

REPORT INFORMATION
  Report Type: Report from Study
  Country: US (occurrence: US)
  Receive Date: 20130927
  Receipt Date: 20130927
  Transmission Date: 20140515
  Serious: Yes (Death)
  Sender: FDA-Public Use
  Company Number: PHEH2013US020200

PATIENT
  Age: 49 Year
  Sex: Male

DRUGS (10)
  1. AFINITOR [Suspect]
     Indication: RENAL CELL CARCINOMA
     Dosage: 10 MG, QD
     Route: 048
  2. ASPIRIN [Concomitant]
  3. DICLOFENAC [Concomitant]
  4. MORPHINE SULPHATE [Concomitant]
  5. MULTI-VIT [Concomitant]
  6. METFORMIN [Concomitant]
  7. AP CALCIUM+VIT D [Concomitant]
  8. LISINOPRIL [Concomitant]
  9. ZOFRAN [Concomitant]
  10. STOOL SOFTENER [Concomitant]

REACTIONS (1)
  - Death [Fatal]
